FAERS Safety Report 4422525-5 (Version None)
Quarter: 2004Q3

REPORT INFORMATION
  Report Type: 
  Country: None (occurrence: None)
  Receive Date: 20040806
  Receipt Date: 20040726
  Transmission Date: 20050211
  Serious: Yes (Hospitalization)
  Sender: FDA-Public Use
  Company Number: 04P-163-0268088-00

PATIENT
  Age: 64 Year
  Sex: Male
  Weight: 97.977 kg

DRUGS (1)
  1. NIMBEX [Suspect]
     Dates: start: 20040411

REACTIONS (1)
  - PARAPLEGIA [None]
